FAERS Safety Report 4540717-1 (Version None)
Quarter: 2004Q4

REPORT INFORMATION
  Report Type: 
  Country: None (occurrence: None)
  Receive Date: 20041229
  Receipt Date: 20040923
  Transmission Date: 20050328
  Serious: Yes (Hospitalization)
  Sender: FDA-Public Use
  Company Number: 200417234US

PATIENT
  Sex: Female
  Weight: 55.4 kg

DRUGS (22)
  1. KETEK [Suspect]
     Indication: BRONCHITIS ACUTE
     Dosage: DOSE: SAMPLES
     Route: 048
  2. PREDNISONE [Concomitant]
     Dosage: DOSE: UNK
  3. VIOKASE [Concomitant]
  4. ACTOS [Concomitant]
     Indication: DIABETES MELLITUS
     Route: 048
     Dates: start: 20040804
  5. SYNTHROID [Concomitant]
     Dosage: DOSE: UNK
  6. SINGULAIR [Concomitant]
     Indication: ASTHMA
  7. ACIPHEX [Concomitant]
  8. ATENOLOL [Concomitant]
  9. PLAVIX [Concomitant]
  10. ZOLOFT [Concomitant]
  11. AXID [Concomitant]
     Dosage: DOSE: UNK
  12. VICODIN [Concomitant]
     Dosage: DOSE: UNK
  13. UNKNOWN DRUG [Concomitant]
     Indication: ASTHMA
     Dosage: DOSE: UNK
  14. MICARDIS [Concomitant]
  15. ACTONEL [Concomitant]
  16. OXYCONTIN [Concomitant]
  17. ADVAIR DISKUS 100/50 [Concomitant]
  18. NASONEX [Concomitant]
  19. OXYGEN [Concomitant]
  20. UNKNOWN DRUG [Concomitant]
  21. PROVIGIL [Concomitant]
  22. ZOVIRAX [Concomitant]
     Route: 061

REACTIONS (6)
  - CONDITION AGGRAVATED [None]
  - DYSPNOEA [None]
  - LUNG DISORDER [None]
  - OEDEMA [None]
  - TREATMENT NONCOMPLIANCE [None]
  - WHITE BLOOD CELL COUNT INCREASED [None]
